FAERS Safety Report 23068689 (Version 2)
Quarter: 2023Q4

REPORT INFORMATION
  Report Type: Report from Study
  Country: FR (occurrence: FR)
  Receive Date: 20231016
  Receipt Date: 20231110
  Transmission Date: 20240110
  Serious: Yes (Hospitalization)
  Sender: FDA-Public Use
  Company Number: FR-SA-SAC20231011001223

PATIENT
  Age: 56 Year
  Sex: Female
  Weight: 78 kg

DRUGS (10)
  1. ISATUXIMAB [Suspect]
     Active Substance: ISATUXIMAB
     Indication: Minimal residual disease
     Dosage: 10 MG/KG, QM
     Route: 042
     Dates: start: 20220311, end: 20220311
  2. ISATUXIMAB [Suspect]
     Active Substance: ISATUXIMAB
     Dosage: 10 MG/KG, QM
     Route: 042
     Dates: start: 20231002, end: 20231002
  3. CARFILZOMIB [Suspect]
     Active Substance: CARFILZOMIB
     Indication: Minimal residual disease
     Dosage: 56 MG/M2 (3 WEEKLY ONLY)
     Route: 042
     Dates: start: 20220311, end: 20220311
  4. CARFILZOMIB [Suspect]
     Active Substance: CARFILZOMIB
     Dosage: 56 MG/M2 (3 WEEKLY ONLY)
     Route: 042
     Dates: start: 20220826, end: 20220826
  5. LENALIDOMIDE [Suspect]
     Active Substance: LENALIDOMIDE
     Indication: Minimal residual disease
     Dosage: 25 MG
     Route: 048
     Dates: start: 20220311, end: 20220311
  6. LENALIDOMIDE [Suspect]
     Active Substance: LENALIDOMIDE
     Dosage: 25 MG
     Route: 048
     Dates: start: 20220901, end: 20220901
  7. DEXAMETHASONE [Suspect]
     Active Substance: DEXAMETHASONE
     Indication: Minimal residual disease
     Dosage: 40 MG, QW
     Route: 048
     Dates: start: 20220311, end: 20220311
  8. DEXAMETHASONE [Suspect]
     Active Substance: DEXAMETHASONE
     Dosage: 40 MG, QW
     Route: 048
     Dates: start: 20220902, end: 20220902
  9. IBERDOMIDE [Suspect]
     Active Substance: IBERDOMIDE
     Indication: Minimal residual disease
     Dosage: 1 MG
     Route: 048
     Dates: start: 20230308, end: 20230308
  10. IBERDOMIDE [Suspect]
     Active Substance: IBERDOMIDE
     Dosage: 1 MG
     Route: 048
     Dates: start: 20231009, end: 20231009

REACTIONS (1)
  - Device related bacteraemia [Recovered/Resolved]

NARRATIVE: CASE EVENT DATE: 20231009
